FAERS Safety Report 11360228 (Version 1)
Quarter: 2015Q3

REPORT INFORMATION
  Report Type: Report from Study
  Country: US (occurrence: US)
  Receive Date: 20150810
  Receipt Date: 20150810
  Transmission Date: 20151125
  Serious: No
  Sender: FDA-Public Use
  Company Number: PHEH2014US011948

PATIENT
  Age: 47 Year
  Sex: Female

DRUGS (4)
  1. EXTAVIA [Suspect]
     Active Substance: INTERFERON BETA-1B
     Dosage: 0.1875 MG (0.75 ML), QOD
     Route: 058
     Dates: start: 20140521
  2. EXTAVIA [Suspect]
     Active Substance: INTERFERON BETA-1B
     Indication: MULTIPLE SCLEROSIS
     Dosage: 0.062 MG (0.25 ML), QOD
     Route: 058
     Dates: start: 20140521
  3. EXTAVIA [Suspect]
     Active Substance: INTERFERON BETA-1B
     Dosage: 0.125 MG (0.5 ML),QOD
     Route: 058
     Dates: start: 20140521
  4. EXTAVIA [Suspect]
     Active Substance: INTERFERON BETA-1B
     Dosage: 0.25 MG (1 ML), QOD
     Route: 058
     Dates: end: 20140605

REACTIONS (4)
  - Abasia [Recovered/Resolved]
  - Asthenia [Recovered/Resolved]
  - Dysstasia [Recovered/Resolved]
  - Injection site pain [Recovered/Resolved]

NARRATIVE: CASE EVENT DATE: 20140601
